FAERS Safety Report 4413037-3 (Version None)
Quarter: 2004Q3

REPORT INFORMATION
  Report Type: 
  Country: None (occurrence: None)
  Receive Date: 20040730
  Receipt Date: 20040730
  Transmission Date: 20050211
  Serious: Yes (Hospitalization)
  Sender: FDA-Public Use
  Company Number: None

PATIENT
  Age: 77 Year
  Sex: Male
  Weight: 116.5744 kg

DRUGS (18)
  1. FUROSEMIDE 40 MG BID 2816/04-6/20 [Suspect]
     Indication: CARDIAC FAILURE CONGESTIVE
     Dosage: 40 MG BID
     Dates: start: 20040219, end: 20040620
  2. FUROSEMIDE 40 MG BID 2816/04-6/20 [Suspect]
     Indication: HYPERTENSION
     Dosage: 40 MG BID
     Dates: start: 20040219, end: 20040620
  3. METOLAZONE [Suspect]
     Dosage: 10 MG X1
     Dates: start: 20040620
  4. DILTIAZEM SA 360 MG DAILY 5/19/04-6/20 [Suspect]
     Dosage: 1 DAILYU
     Dates: start: 20040519, end: 20040620
  5. ENALAPRIL 10 MG DAILY 6/3/04-6/20 [Suspect]
     Dosage: 1 TABLET DAILY
     Dates: start: 20040603, end: 20040620
  6. DILTIAZEM [Concomitant]
  7. AMIODARONE HCL [Concomitant]
  8. SIMVASTATIN [Concomitant]
  9. METOLAZONE [Concomitant]
  10. FUROSEMIDE [Concomitant]
  11. ENALAPRIL MALEATE [Concomitant]
  12. TRIAMCINOLONE ACETONIDE [Concomitant]
  13. LEVOTHYROXINE SODIUM [Concomitant]
  14. ALLOPURINOL [Concomitant]
  15. FLUNISOLIDE [Concomitant]
  16. ALBUTEROL SO4 [Concomitant]
  17. ALBUTEROL 90/IPRATROP18MCG [Concomitant]
  18. THIAMINE HCL [Concomitant]

REACTIONS (3)
  - ASTHENIA [None]
  - ORTHOSTATIC HYPOTENSION [None]
  - SYNCOPE [None]
